FAERS Safety Report 19736776 (Version 1)
Quarter: 2021Q3

REPORT INFORMATION
  Report Type: Spontaneous
  Country: US (occurrence: US)
  Receive Date: 20210820
  Receipt Date: 20210820
  Transmission Date: 20211014
  Serious: Yes (Death)
  Sender: FDA-Public Use
  Company Number: None

PATIENT
  Age: 64 Year
  Sex: Female

DRUGS (14)
  1. PHOSPHA TAB NEUTRAL [Concomitant]
  2. ASPIRIN LOW TAB [Concomitant]
  3. FOLIC ACID. [Concomitant]
     Active Substance: FOLIC ACID
  4. VITAMIN D TAB [Concomitant]
  5. ESBRIET [Suspect]
     Active Substance: PIRFENIDONE
     Indication: IDIOPATHIC PULMONARY FIBROSIS
     Route: 048
     Dates: start: 20181227, end: 20210803
  6. PENICILLIN VK TAB [Concomitant]
     Active Substance: PENICILLIN V POTASSIUM
  7. LIPITOR TAB [Concomitant]
  8. BACTRIM DS TAB [Concomitant]
  9. CALCIUM CHW [Concomitant]
  10. LEVOTHYROXIN TAB [Concomitant]
  11. MAG OXIDE TAB [Concomitant]
  12. METOPROL SUC TAB [Concomitant]
  13. ACYCLOVIR. [Concomitant]
     Active Substance: ACYCLOVIR
  14. OMEPRAZOLE TAB [Concomitant]

REACTIONS (1)
  - Death [None]

NARRATIVE: CASE EVENT DATE: 20210803
